FAERS Safety Report 7424004-X (Version None)
Quarter: 2011Q2

REPORT INFORMATION
  Report Type: 
  Country: None (occurrence: None)
  Receive Date: 20110419
  Receipt Date: 20110408
  Transmission Date: 20111010
  Serious: Yes (Hospitalization)
  Sender: FDA-Public Use
  Company Number: FR-JNJFOC-20110406366

PATIENT
  Sex: Female

DRUGS (10)
  1. VALIUM [Suspect]
     Indication: PRODUCT USED FOR UNKNOWN INDICATION
     Route: 048
  2. LARGACTIL [Suspect]
     Indication: PRODUCT USED FOR UNKNOWN INDICATION
     Route: 048
  3. LAROXYL [Suspect]
     Indication: PRODUCT USED FOR UNKNOWN INDICATION
     Route: 048
  4. TEMESTA [Suspect]
     Indication: PRODUCT USED FOR UNKNOWN INDICATION
     Route: 048
  5. TENORMIN [Concomitant]
     Route: 065
  6. ZALDIAR [Suspect]
     Indication: PRODUCT USED FOR UNKNOWN INDICATION
     Route: 048
  7. SERC [Concomitant]
     Route: 065
  8. KENZEN [Concomitant]
     Route: 065
  9. NAFTILUX [Concomitant]
     Route: 065
  10. CHONDROSULF [Concomitant]
     Route: 065

REACTIONS (1)
  - FALL [None]
